FAERS Safety Report 10071123 (Version 1)
Quarter: 2014Q2

REPORT INFORMATION
  Report Type: Spontaneous
  Country: US (occurrence: US)
  Receive Date: 20140410
  Receipt Date: 20140410
  Transmission Date: 20141212
  Serious: Yes (Hospitalization, Other)
  Sender: FDA-Public Use
  Company Number: US-TEVA-474679USA

PATIENT
  Age: 65 Year
  Sex: Female
  Weight: 85 kg

DRUGS (14)
  1. WARFARIN [Suspect]
     Dosage: 5MG ON SUNDAY, WED; 2.5MG ON OTHER DAYS; EACH EVENING BEFORE BEDTIME
     Route: 065
  2. VALPROATE SEMISODIUM [Interacting]
     Indication: HEADACHE
     Route: 048
  3. VALPROATE SEMISODIUM [Interacting]
     Indication: PROPHYLAXIS
     Route: 048
  4. AMITRIPTYLINE [Concomitant]
     Dosage: 12.5MG DAILY
     Route: 065
  5. IRBESARTAN [Concomitant]
     Dosage: 150MG DAILY
     Route: 065
  6. BOTULINUM TOXIN A [Concomitant]
     Dosage: 100 UNITS EVERY 3MO
     Route: 030
  7. CENTRUM [Concomitant]
     Dosage: DAILY
     Route: 065
  8. BISACODYL [Concomitant]
     Dosage: 10MG PRN
     Route: 065
  9. SODIUM DIOCTYL SULFOSUCCINATE [Concomitant]
     Route: 065
  10. DIGOXIN [Concomitant]
     Dosage: 125 MICROG DAILY
     Route: 065
  11. METFORMIN [Concomitant]
     Route: 065
  12. CALCIUM CARBONATE, COLECALCIFEROL [Concomitant]
     Dosage: CALCIUM CARBONATE 500MG/COLECALCIFEROL 400IU TWICE DAILY
     Route: 065
  13. PAROXETINE [Concomitant]
     Dosage: 40MG DAILY
     Route: 065
  14. SIMVASTATIN [Concomitant]
     Dosage: 20MG DAILY
     Route: 065

REACTIONS (5)
  - Dyspnoea [Unknown]
  - Cardiac failure [Unknown]
  - International normalised ratio increased [Recovered/Resolved]
  - Drug interaction [Recovered/Resolved]
  - Fatigue [Unknown]
